FAERS Safety Report 13624700 (Version 2)
Quarter: 2017Q2

REPORT INFORMATION
  Report Type: Spontaneous
  Country: US (occurrence: US)
  Receive Date: 20170608
  Receipt Date: 20170623
  Transmission Date: 20170830
  Serious: Yes (Hospitalization)
  Sender: FDA-Public Use
  Company Number: US-PFIZER INC-2017248272

PATIENT
  Age: 72 Year
  Sex: Male

DRUGS (3)
  1. SUTENT [Suspect]
     Active Substance: SUNITINIB MALATE
     Indication: RENAL CANCER STAGE IV
     Dosage: 50 MG, CYCLIC (28 DAYS ON/14 DAYS OFF)
     Dates: end: 20170528
  2. FLOMAX [Concomitant]
     Active Substance: TAMSULOSIN HYDROCHLORIDE
     Dosage: UNK
  3. LEVOTHYROXINE. [Concomitant]
     Active Substance: LEVOTHYROXINE
     Dosage: UNK

REACTIONS (9)
  - Fatigue [Unknown]
  - Decreased appetite [Unknown]
  - Cardiac failure congestive [Unknown]
  - Weight decreased [Unknown]
  - Pain in extremity [Unknown]
  - Dyspnoea [Unknown]
  - Peripheral swelling [Unknown]
  - Thyroid disorder [Unknown]
  - Asthenia [Unknown]
